FAERS Safety Report 11632283 (Version 1)
Quarter: 2015Q4

REPORT INFORMATION
  Report Type: Spontaneous
  Country: US (occurrence: None)
  Receive Date: 20151014
  Receipt Date: 20151014
  Transmission Date: 20160304
  Serious: Yes (Other)
  Sender: FDA-Public Use
  Company Number: None

PATIENT
  Age: 32 Year
  Sex: Male
  Weight: 39.5 kg

DRUGS (11)
  1. LORAZEPAM. [Concomitant]
     Active Substance: LORAZEPAM
  2. MONTELUKAST [Concomitant]
     Active Substance: MONTELUKAST SODIUM
  3. VITAMIN D [Concomitant]
     Active Substance: CHOLECALCIFEROL
  4. LEVETIRACETAM. [Concomitant]
     Active Substance: LEVETIRACETAM
  5. PHOSPHORUS SUPPLEMENTS [Concomitant]
  6. QUETIAPINE 100MG [Suspect]
     Active Substance: QUETIAPINE
     Indication: MOVEMENT DISORDER
     Dosage: G-TUBE
     Dates: start: 201412
  7. ZEGERID [Concomitant]
     Active Substance: OMEPRAZOLE\SODIUM BICARBONATE
  8. DENOSUMAB [Concomitant]
     Active Substance: DENOSUMAB
  9. SCOPOLAMINE PATCH [Concomitant]
     Active Substance: SCOPOLAMINE
  10. OXCARBAZEPINE. [Concomitant]
     Active Substance: OXCARBAZEPINE
  11. CALCIUM [Concomitant]
     Active Substance: CALCIUM

REACTIONS (1)
  - Cataract [None]

NARRATIVE: CASE EVENT DATE: 20150924
